FAERS Safety Report 9746445 (Version 3)
Quarter: 2014Q2

REPORT INFORMATION
  Report Type: Spontaneous
  Country: CA (occurrence: CA)
  Receive Date: 20131211
  Receipt Date: 20140430
  Transmission Date: 20141212
  Serious: Yes (Life-Threatening, Other)
  Sender: FDA-Public Use
  Company Number: CA-MERCK-1310CAN009403

PATIENT
  Age: 59 Year
  Sex: Male
  Weight: 68 kg

DRUGS (11)
  1. INVANZ [Suspect]
     Indication: CELLULITIS
     Dosage: 1 G, QD
     Route: 042
     Dates: start: 20120827, end: 20120905
  2. INVANZ [Suspect]
     Indication: TENOSYNOVITIS
  3. PREDNISONE [Concomitant]
     Dosage: 5 DF, QD
     Route: 048
  4. ADVAGRAF [Concomitant]
     Route: 048
  5. MYFORTIC [Concomitant]
     Route: 048
  6. LOPRESSOR [Concomitant]
     Route: 065
  7. ASPIRIN [Concomitant]
     Route: 065
  8. PLAVIX [Concomitant]
     Route: 048
  9. LIPITOR [Concomitant]
     Route: 048
  10. SYNTHROID [Concomitant]
     Route: 065
  11. PANTOLOC [Concomitant]
     Route: 048

REACTIONS (7)
  - Restlessness [Recovered/Resolved]
  - Psychotic disorder [Recovering/Resolving]
  - Pyrexia [Recovered/Resolved]
  - Hallucination [Recovered/Resolved]
  - Confusional state [Recovered/Resolved]
  - Myoclonus [Recovered/Resolved]
  - Agitation [Recovered/Resolved]
